FAERS Safety Report 10558456 (Version 2)
Quarter: 2014Q4

REPORT INFORMATION
  Report Type: Report from Study
  Country: CL (occurrence: CL)
  Receive Date: 20141031
  Receipt Date: 20141230
  Transmission Date: 20150529
  Serious: Yes (Hospitalization)
  Sender: FDA-Public Use
  Company Number: CL-JNJFOC-20141019325

PATIENT
  Age: 82 Year
  Sex: Female
  Weight: 60.5 kg

DRUGS (10)
  1. NEBIVOLOL [Concomitant]
     Active Substance: NEBIVOLOL
     Route: 065
     Dates: start: 20130801
  2. VYTORIN [Concomitant]
     Active Substance: EZETIMIBE\SIMVASTATIN
     Route: 065
     Dates: start: 20120905
  3. CLOPIDOGREL [Concomitant]
     Active Substance: CLOPIDOGREL BISULFATE
     Indication: ANTIPLATELET THERAPY
     Route: 065
     Dates: start: 20140110
  4. HOLADREN [Concomitant]
     Route: 065
     Dates: start: 20120621
  5. RIVAROXABAN [Suspect]
     Active Substance: RIVAROXABAN
     Indication: CEREBROVASCULAR ACCIDENT PROPHYLAXIS
     Route: 048
     Dates: start: 20140111
  6. LOSARTAN [Concomitant]
     Active Substance: LOSARTAN
     Indication: HYPERTENSION
     Route: 065
     Dates: start: 20130114, end: 20140410
  7. DIGOXINA [Concomitant]
     Active Substance: DIGOXIN
     Route: 065
     Dates: start: 20130301
  8. ELCAL D [Concomitant]
     Route: 065
     Dates: start: 20120905
  9. RIVAROXABAN [Suspect]
     Active Substance: RIVAROXABAN
     Indication: ATRIAL FIBRILLATION
     Route: 048
     Dates: start: 20140111
  10. LOSARTAN [Concomitant]
     Active Substance: LOSARTAN
     Indication: HYPERTENSION
     Route: 065
     Dates: start: 20140411

REACTIONS (2)
  - Drug intolerance [Unknown]
  - Gastritis [Unknown]

NARRATIVE: CASE EVENT DATE: 20141022
